FAERS Safety Report 4632373-9 (Version None)
Quarter: 2005Q2

REPORT INFORMATION
  Report Type: 
  Country: None (occurrence: None)
  Receive Date: 20050411
  Receipt Date: 20050203
  Transmission Date: 20051028
  Serious: Yes (Life-Threatening)
  Sender: FDA-Public Use
  Company Number: 2005JP000223

PATIENT
  Age: 38 Year
  Sex: Female
  Weight: 59.6 kg

DRUGS (2)
  1. CEFAZOLIN [Suspect]
     Indication: INFECTION PROPHYLAXIS
     Dosage: 1G TWICE PER DAY
     Route: 042
     Dates: start: 20050128, end: 20050128
  2. SOLITA-T3 [Concomitant]
     Dates: start: 20050128, end: 20050129

REACTIONS (9)
  - ABDOMINAL PAIN UPPER [None]
  - ANAPHYLACTIC SHOCK [None]
  - BLOOD PRESSURE DECREASED [None]
  - HAEMORRHAGE [None]
  - LOSS OF CONSCIOUSNESS [None]
  - OEDEMA [None]
  - PILOERECTION [None]
  - RASH ERYTHEMATOUS [None]
  - VOMITING [None]
